FAERS Safety Report 17255784 (Version 1)
Quarter: 2020Q1

REPORT INFORMATION
  Report Type: Report from Study
  Country: US (occurrence: US)
  Receive Date: 20200110
  Receipt Date: 20200110
  Transmission Date: 20200409
  Serious: No
  Sender: FDA-Public Use
  Company Number: US-BEH-2019111049

PATIENT
  Age: 35 Year
  Sex: Male
  Weight: 81.63 kg

DRUGS (1)
  1. HIZENTRA [Suspect]
     Active Substance: HUMAN IMMUNOGLOBULIN G
     Indication: HUMORAL IMMUNE DEFECT
     Dosage: 24 GRAM, QOW
     Route: 058
     Dates: start: 20191215

REACTIONS (4)
  - Infusion site reaction [Recovering/Resolving]
  - Infusion site pain [Recovering/Resolving]
  - Infusion site bruising [Recovering/Resolving]
  - Infusion site erythema [Recovering/Resolving]

NARRATIVE: CASE EVENT DATE: 20191216
